FAERS Safety Report 15677649 (Version 1)
Quarter: 2018Q4

REPORT INFORMATION
  Report Type: Spontaneous
  Country: FR (occurrence: FR)
  Receive Date: 20181130
  Receipt Date: 20181130
  Transmission Date: 20190205
  Serious: Yes (Hospitalization)
  Sender: FDA-Public Use
  Company Number: PHHY2018FR170484

PATIENT
  Age: 71 Year
  Sex: Female

DRUGS (1)
  1. ACLASTA [Suspect]
     Active Substance: ZOLEDRONIC ACID
     Indication: PRODUCT USED FOR UNKNOWN INDICATION
     Dosage: UNK UNK, ONCE/SINGLE
     Route: 065

REACTIONS (7)
  - Vomiting [Unknown]
  - Gait disturbance [Unknown]
  - Dizziness [Unknown]
  - Vision blurred [Unknown]
  - Fall [Unknown]
  - Presyncope [Unknown]
  - Nausea [Unknown]
